FAERS Safety Report 8556117-3 (Version None)
Quarter: 2012Q3

REPORT INFORMATION
  Report Type: 
  Country: None (occurrence: None)
  Receive Date: 20120801
  Receipt Date: 20111005
  Transmission Date: 20120928
  Serious: Yes (Hospitalization)
  Sender: FDA-Public Use
  Company Number: US-BAYER-200921527NA

PATIENT
  Age: 43 Year
  Sex: Female
  Weight: 60 kg

DRUGS (30)
  1. ORTHO-CEPT [Concomitant]
     Dates: start: 19970101
  2. PROMETHEGAN [Concomitant]
  3. PROTONIX [Concomitant]
     Indication: PEPTIC ULCER
     Dosage: UNK
     Dates: start: 20070301
  4. LACTATO DE RINGER [Concomitant]
     Route: 042
  5. LIDOCAINE [Concomitant]
     Route: 042
  6. ONDANSETRON [Concomitant]
     Indication: NAUSEA
  7. PROPOFOL [Concomitant]
  8. AMANTADINE HCL [Concomitant]
     Indication: PANIC ATTACK
     Dates: start: 19980101
  9. PROMETHAZINE [Concomitant]
     Route: 054
  10. ROCURONIUM BROMIDE [Concomitant]
  11. DESOGESTREL AND ETHINYL ESTRADIOL [Concomitant]
     Dates: start: 19970101
  12. FENTANYL CITRATE [Concomitant]
     Route: 042
  13. YASMIN [Suspect]
     Indication: CONTRACEPTION
     Dosage: UNK UNK, QD
     Route: 048
     Dates: start: 20041222, end: 20090115
  14. EFFEXOR [Concomitant]
     Indication: PANIC ATTACK
     Dates: start: 19980101
  15. DESOGEN [Concomitant]
     Dosage: THESE DATES OF TREATMENT WERE PROVIDED BY DOCTOR'S NOTE.
     Dates: start: 20040622, end: 20070101
  16. TERAZOSIN HYDROCHLORIDE [Concomitant]
     Dates: start: 20070522
  17. HYDROCODONE BITARTRATE + ACETAMINOPHEN [Concomitant]
     Indication: PAIN
  18. NEOSTIGMINE METHYLSULFATE [Concomitant]
  19. DARVOCET [Concomitant]
     Indication: PAIN
     Dates: start: 20070101
  20. ONDANSETRON [Concomitant]
     Indication: VOMITING
     Route: 042
  21. ATROPINE [Concomitant]
  22. GLYCOPYRROLATE [Concomitant]
  23. CEFOXITIN [Concomitant]
  24. NSAID'S [Concomitant]
  25. DROSPIRENONE AND ETHINYL ESTRADIOL [Suspect]
     Indication: CONTRACEPTION
     Dosage: UNK UNK, QD
     Route: 048
     Dates: start: 20041222, end: 20090101
  26. ANTIBIOTICS [Concomitant]
     Dosage: VAIROUS. SINCE 1984
  27. ASCORBIC ACID [Concomitant]
     Dates: start: 20090101
  28. DESOGEN [Concomitant]
     Dates: start: 19940101, end: 19970101
  29. NORDETTE-21 [Concomitant]
     Dates: start: 19820101
  30. SODIUM CHLORIDE [Concomitant]
     Route: 042

REACTIONS (9)
  - PAIN [None]
  - FEAR [None]
  - CHOLELITHIASIS [None]
  - ABDOMINAL PAIN [None]
  - HELICOBACTER TEST POSITIVE [None]
  - CHOLECYSTITIS ACUTE [None]
  - ANXIETY [None]
  - PEPTIC ULCER [None]
  - DYSPEPSIA [None]
